FAERS Safety Report 5860753-2 (Version None)
Quarter: 2008Q3

REPORT INFORMATION
  Report Type: 
  Country: None (occurrence: None)
  Receive Date: 20080827
  Receipt Date: 20080122
  Transmission Date: 20090109
  Serious: No
  Sender: FDA-Public Use
  Company Number: US-ABBOTT-07P-163-0424184-00

PATIENT
  Sex: Female

DRUGS (4)
  1. NIASPAN [Suspect]
     Indication: BLOOD CHOLESTEROL
     Dosage: TWO
     Route: 048
     Dates: start: 20071001, end: 20071001
  2. NIASPAN [Suspect]
     Dosage: TWO
     Route: 048
     Dates: start: 20071001, end: 20071001
  3. NIASPAN [Suspect]
     Route: 048
     Dates: start: 20071101
  4. NIASPAN [Suspect]
     Route: 048
     Dates: start: 20060101, end: 20071001

REACTIONS (2)
  - NAUSEA [None]
  - VOMITING [None]
